FAERS Safety Report 17195140 (Version 2)
Quarter: 2019Q4

REPORT INFORMATION
  Report Type: Spontaneous
  Country: US (occurrence: US)
  Receive Date: 20191224
  Receipt Date: 20191227
  Transmission Date: 20200122
  Serious: No
  Sender: FDA-Public Use
  Company Number: US-JNJFOC-20191225003

PATIENT
  Sex: Female
  Weight: 54.48 kg

DRUGS (1)
  1. MENS ROGAINE EXTRA STRENGTH [Suspect]
     Active Substance: MINOXIDIL
     Indication: ALOPECIA
     Dosage: 2 SQUIRTS
     Route: 061
     Dates: start: 201911

REACTIONS (6)
  - Product use in unapproved indication [Unknown]
  - Off label use [Unknown]
  - Product formulation issue [Unknown]
  - Product container issue [Unknown]
  - Poor quality product administered [Unknown]
  - Product use issue [Unknown]

NARRATIVE: CASE EVENT DATE: 2019
